FAERS Safety Report 24068566 (Version 1)
Quarter: 2024Q3

REPORT INFORMATION
  Report Type: Spontaneous
  Country: US (occurrence: US)
  Receive Date: 20240710
  Receipt Date: 20240710
  Transmission Date: 20241017
  Serious: No
  Sender: ROCHE
  Company Number: US-ROCHE-3559577

PATIENT

DRUGS (1)
  1. ENTRECTINIB [Suspect]
     Active Substance: ENTRECTINIB
     Indication: Non-small cell lung cancer metastatic
     Route: 048
     Dates: start: 202310

REACTIONS (2)
  - Vision blurred [Unknown]
  - Eye pain [Unknown]
